FAERS Safety Report 14630531 (Version 1)
Quarter: 2018Q1

REPORT INFORMATION
  Report Type: Spontaneous
  Country: FR (occurrence: FR)
  Receive Date: 20180313
  Receipt Date: 20180313
  Transmission Date: 20180509
  Serious: Yes (Hospitalization)
  Sender: FDA-Public Use
  Company Number: FR-009507513-1803FRA002689

PATIENT
  Age: 70 Year
  Sex: Male
  Weight: 61 kg

DRUGS (4)
  1. TRILEPTAL [Suspect]
     Active Substance: OXCARBAZEPINE
     Indication: EPILEPSY
     Dosage: 450 MG, QD
     Route: 048
     Dates: end: 20180203
  2. OMEPRAZOLE. [Suspect]
     Active Substance: OMEPRAZOLE
     Dosage: 20 MG, QD
     Route: 048
     Dates: end: 20180128
  3. TEMODAL [Suspect]
     Active Substance: TEMOZOLOMIDE
     Dosage: CYCLICAL
     Route: 048
     Dates: start: 2017, end: 2018
  4. ATENOLOL. [Suspect]
     Active Substance: ATENOLOL
     Indication: ARRHYTHMIA
     Dosage: 50 MG, QD
     Route: 048
     Dates: start: 201801, end: 20180130

REACTIONS (1)
  - Agranulocytosis [Recovered/Resolved]

NARRATIVE: CASE EVENT DATE: 20180128
